FAERS Safety Report 23622747 (Version 1)
Quarter: 2024Q1

REPORT INFORMATION
  Report Type: Spontaneous
  Country: US (occurrence: US)
  Receive Date: 20240312
  Receipt Date: 20240312
  Transmission Date: 20240410
  Serious: No
  Sender: FDA-Public Use
  Company Number: US-JNJFOC-20240301645

PATIENT
  Sex: Female

DRUGS (2)
  1. TYLENOL [Suspect]
     Active Substance: ACETAMINOPHEN
     Indication: Product used for unknown indication
     Dosage: ENTIRE DOSE OF TYLENOL EVERY DAY 6 IN THE MORNING, AT NOON AND IN THE EVENING
     Route: 065
  2. TYLENOL [Suspect]
     Active Substance: ACETAMINOPHEN
     Dosage: TWICE A DAY
     Route: 065

REACTIONS (2)
  - Prescribed overdose [Unknown]
  - Off label use [Unknown]
